FAERS Safety Report 12955959 (Version 1)
Quarter: 2016Q4

REPORT INFORMATION
  Report Type: Spontaneous
  Country: US (occurrence: US)
  Receive Date: 20161118
  Receipt Date: 20161118
  Transmission Date: 20170207
  Serious: Yes (Other)
  Sender: FDA-Public Use
  Company Number: US-AMGEN-USASP2016160226

PATIENT
  Sex: Male

DRUGS (4)
  1. TAXOL [Concomitant]
     Active Substance: PACLITAXEL
     Indication: PROSTATE CANCER
  2. NEULASTA [Suspect]
     Active Substance: PEGFILGRASTIM
     Indication: PRODUCT USED FOR UNKNOWN INDICATION
     Dosage: UNK
     Route: 065
  3. TAXOL [Concomitant]
     Active Substance: PACLITAXEL
     Indication: COLON CANCER
     Dosage: ONCE FOR 16 WEEKS
  4. TAXOL [Concomitant]
     Active Substance: PACLITAXEL
     Indication: BREAST CANCER

REACTIONS (16)
  - Extra dose administered [Unknown]
  - Bone pain [Unknown]
  - Mastectomy [Unknown]
  - Surgery [Unknown]
  - Gait disturbance [Not Recovered/Not Resolved]
  - Pain in extremity [Unknown]
  - Colon cancer [Unknown]
  - Prostate cancer [Unknown]
  - Wrong technique in product usage process [Unknown]
  - Breast cancer [Unknown]
  - Vomiting [Unknown]
  - Head discomfort [Unknown]
  - Abdominal discomfort [Unknown]
  - Abdominal pain [Unknown]
  - Cough [Unknown]
  - Arthralgia [Unknown]

NARRATIVE: CASE EVENT DATE: 201611
